FAERS Safety Report 10539213 (Version 1)
Quarter: 2014Q4

REPORT INFORMATION
  Report Type: Spontaneous
  Country: IT (occurrence: IT)
  Receive Date: 20141023
  Receipt Date: 20141023
  Transmission Date: 20150529
  Serious: Yes (Other)
  Sender: FDA-Public Use
  Company Number: IT-ELI_LILLY_AND_COMPANY-IT201410005543

PATIENT
  Age: 54 Year
  Sex: Male

DRUGS (2)
  1. ZYPADHERA [Suspect]
     Active Substance: OLANZAPINE PAMOATE
     Indication: DISSOCIATIVE DISORDER
     Dosage: 405 MG, MONTHLY (1/M)
     Route: 030
     Dates: start: 20140104, end: 20140704
  2. TAVOR [Concomitant]
     Active Substance: LORAZEPAM
     Dosage: UNK, UNKNOWN
     Route: 065

REACTIONS (5)
  - Tachycardia [Recovered/Resolved]
  - Pallor [Recovered/Resolved]
  - Hypotension [Recovered/Resolved]
  - Hyperhidrosis [Recovered/Resolved]
  - Off label use [Unknown]

NARRATIVE: CASE EVENT DATE: 20140704
